FAERS Safety Report 10734639 (Version 2)
Quarter: 2015Q1

REPORT INFORMATION
  Report Type: Spontaneous
  Country: US (occurrence: US)
  Receive Date: 20150123
  Receipt Date: 20150326
  Transmission Date: 20150721
  Serious: No
  Sender: FDA-Public Use
  Company Number: US-PFIZER INC-2015023622

PATIENT
  Age: 73 Year
  Sex: Male
  Weight: 68.27 kg

DRUGS (7)
  1. KETOPROFEN. [Concomitant]
     Active Substance: KETOPROFEN
     Indication: ARTHRITIS
     Dosage: 75 MG, ALTERNATE DAY
     Route: 048
  2. KETOPROFEN. [Concomitant]
     Active Substance: KETOPROFEN
     Dosage: 75 MG, DAILY  PRN
     Route: 048
     Dates: start: 201307
  3. VIAGRA [Suspect]
     Active Substance: SILDENAFIL CITRATE
     Indication: ERECTILE DYSFUNCTION
     Dosage: 25 MG, AS NEEDED DAILY
     Route: 048
     Dates: start: 20141214
  4. PRAVASTATIN [Concomitant]
     Active Substance: PRAVASTATIN\PRAVASTATIN SODIUM
     Indication: HYPERCHOLESTEROLAEMIA
     Dosage: 10 MG CUT IN HALF, 5-7 MG, A DAY
     Route: 048
  5. ASPRIIN [Concomitant]
     Indication: PROPHYLAXIS
     Dosage: 81 MG, 1X/DAY
     Route: 048
  6. VITAMIN D3 [Concomitant]
     Active Substance: CHOLECALCIFEROL
     Dosage: 2000 UNITS TWO CAPSULES A DAY
     Route: 048
  7. PRAVASTATIN [Concomitant]
     Active Substance: PRAVASTATIN\PRAVASTATIN SODIUM
     Dosage: 5 MG, DAILY (HS)
     Route: 048
     Dates: start: 20140204

REACTIONS (2)
  - Anorgasmia [Unknown]
  - Ejaculation failure [Unknown]

NARRATIVE: CASE EVENT DATE: 201501
